FAERS Safety Report 6130489-1 (Version None)
Quarter: 2009Q1

REPORT INFORMATION
  Report Type: 
  Country: None (occurrence: None)
  Receive Date: 20090323
  Receipt Date: 20090310
  Transmission Date: 20090719
  Serious: Yes (Other)
  Sender: FDA-Public Use
  Company Number: 1022556-2009-00018

PATIENT
  Sex: Female

DRUGS (1)
  1. CAPZASIN CREME 1.5 OZ. [Suspect]
     Indication: ANALGESIC THERAPY
     Dosage: 1 X, TOPICAL
     Route: 061
     Dates: start: 20090306

REACTIONS (3)
  - BLISTER [None]
  - CAUSTIC INJURY [None]
  - THROAT TIGHTNESS [None]
